FAERS Safety Report 7299379-5 (Version None)
Quarter: 2011Q1

REPORT INFORMATION
  Report Type: 
  Country: None (occurrence: None)
  Receive Date: 20110217
  Receipt Date: 20110208
  Transmission Date: 20110831
  Serious: Yes (Hospitalization)
  Sender: FDA-Public Use
  Company Number: B0694065A

PATIENT
  Sex: Male
  Weight: 50.1 kg

DRUGS (10)
  1. LOXONIN [Concomitant]
     Indication: BACK PAIN
     Dosage: 60MG PER DAY
     Route: 048
  2. CALBLOCK [Concomitant]
     Indication: HYPERTENSION
     Dosage: 16MG PER DAY
     Route: 048
  3. WARFARIN [Concomitant]
     Dosage: 1.75MG PER DAY
     Route: 048
  4. FUROSEMIDE [Concomitant]
     Dosage: 40MG PER DAY
     Route: 048
  5. PRECIPITATED CALCIUM CARBONATE [Concomitant]
     Dosage: 3MG PER DAY
     Route: 048
  6. VALTREX [Suspect]
     Indication: HERPES ZOSTER
     Route: 048
     Dates: start: 20110112, end: 20110113
  7. THYRADIN S [Concomitant]
     Indication: HYPOTHYROIDISM
     Dosage: 25MCG PER DAY
     Route: 048
  8. PARIET [Concomitant]
     Indication: GASTRIC ULCER
     Dosage: 10MG PER DAY
     Route: 048
  9. VERAPAMIL HCL [Concomitant]
     Indication: ARRHYTHMIA
     Dosage: 120MG PER DAY
     Route: 048
  10. ONEALFA [Concomitant]
     Indication: OSTEOPOROSIS
     Dosage: .25MCG PER DAY
     Route: 048

REACTIONS (10)
  - NERVOUS SYSTEM DISORDER [None]
  - GAIT DISTURBANCE [None]
  - DEPRESSED LEVEL OF CONSCIOUSNESS [None]
  - CLUMSINESS [None]
  - AGITATION [None]
  - LOGORRHOEA [None]
  - PSYCHOMOTOR HYPERACTIVITY [None]
  - SLOW RESPONSE TO STIMULI [None]
  - DIZZINESS [None]
  - HYPERKINESIA [None]
